FAERS Safety Report 6731452-X (Version None)
Quarter: 2010Q2

REPORT INFORMATION
  Report Type: 
  Country: None (occurrence: None)
  Receive Date: 20100519
  Receipt Date: 20100514
  Transmission Date: 20101027
  Serious: Yes (Hospitalization)
  Sender: FDA-Public Use
  Company Number: US-BRISTOL-MYERS SQUIBB COMPANY-15106677

PATIENT
  Age: 80 Year
  Sex: Female
  Weight: 60 kg

DRUGS (3)
  1. IXEMPRA KIT [Suspect]
     Indication: ENDOMETRIAL CANCER
     Dosage: TOTAL NO OF COURSES: 4, LAST DOSE ON 27JAN10
     Route: 042
     Dates: start: 20091210
  2. CARBOPLATIN [Suspect]
     Indication: ENDOMETRIAL CANCER
     Route: 042
     Dates: start: 20091210
  3. BEVACIZUMAB [Suspect]
     Indication: ENDOMETRIAL CANCER
     Dosage: TOTAL NO OF COURSES:4 LAST DOSE ON 27JAN10
     Route: 042
     Dates: start: 20091210

REACTIONS (5)
  - ABDOMINAL PAIN [None]
  - CONSTIPATION [None]
  - DEHYDRATION [None]
  - HYPONATRAEMIA [None]
  - URINARY TRACT INFECTION [None]
